FAERS Safety Report 25239108 (Version 1)
Quarter: 2025Q2

REPORT INFORMATION
  Report Type: Spontaneous
  Country: RU (occurrence: RU)
  Receive Date: 20250425
  Receipt Date: 20250425
  Transmission Date: 20250716
  Serious: Yes (Other)
  Sender: REGENERON
  Company Number: RU-BAYER-2025A049458

PATIENT
  Age: 62 Year
  Sex: Male

DRUGS (2)
  1. EYLEA [Suspect]
     Active Substance: AFLIBERCEPT
     Indication: Neovascular age-related macular degeneration
     Dates: start: 20240930, end: 20240930
  2. EYLEA [Suspect]
     Active Substance: AFLIBERCEPT
     Dates: start: 20250127

REACTIONS (13)
  - Retinal oedema [Unknown]
  - Corneal neovascularisation [Unknown]
  - Blindness unilateral [Unknown]
  - Cystoid macular oedema [Unknown]
  - Post thrombotic retinopathy [Unknown]
  - Retinal dystrophy [Unknown]
  - Retinal vein occlusion [Unknown]
  - Retinal haemorrhage [Unknown]
  - Optic atrophy [Unknown]
  - Retinal thickening [Unknown]
  - Cataract [Unknown]
  - Exfoliation syndrome [Unknown]
  - Drug ineffective [Unknown]
